FAERS Safety Report 4478410-6 (Version None)
Quarter: 2004Q4

REPORT INFORMATION
  Report Type: 
  Country: None (occurrence: None)
  Receive Date: 20041018
  Receipt Date: 20041018
  Transmission Date: 20050328
  Serious: Yes (Other)
  Sender: FDA-Public Use
  Company Number: None

PATIENT
  Age: 60 Year
  Sex: Male
  Weight: 93.441 kg

DRUGS (1)
  1. DOXAZOSIN 2MG [Suspect]
     Indication: BLADDER NECK OBSTRUCTION
     Dosage: ONCE PO HS
     Route: 048

REACTIONS (1)
  - HEART RATE DECREASED [None]
